FAERS Safety Report 4948842-8 (Version None)
Quarter: 2006Q1

REPORT INFORMATION
  Report Type: 
  Country: None (occurrence: None)
  Receive Date: 20060321
  Receipt Date: 20060310
  Transmission Date: 20060701
  Serious: Yes (Hospitalization)
  Sender: FDA-Public Use
  Company Number: PHBS2006DE03865

PATIENT
  Age: 53 Year
  Sex: Female

DRUGS (2)
  1. RAMIPRIL DURA PLUS [Suspect]
     Dosage: 20 TABLETS, ONCE/SINGLE
     Route: 048
  2. METOPROLOL [Suspect]
     Dosage: 9.5 G, ONCE/SINGLE
     Route: 048

REACTIONS (14)
  - BLOOD CREATININE INCREASED [None]
  - BLOOD PRESSURE DECREASED [None]
  - BUNDLE BRANCH BLOCK RIGHT [None]
  - C-REACTIVE PROTEIN INCREASED [None]
  - CARDIOGENIC SHOCK [None]
  - DRUG LEVEL INCREASED [None]
  - INTENTIONAL OVERDOSE [None]
  - LABORATORY TEST ABNORMAL [None]
  - LOSS OF CONSCIOUSNESS [None]
  - PNEUMONIA ASPIRATION [None]
  - RENAL FAILURE ACUTE [None]
  - SINUS BRADYCARDIA [None]
  - SUICIDE ATTEMPT [None]
  - VENTRICULAR DYSFUNCTION [None]
